FAERS Safety Report 8356039-7 (Version None)
Quarter: 2012Q2

REPORT INFORMATION
  Report Type: 
  Country: None (occurrence: None)
  Receive Date: 20120511
  Receipt Date: 20120511
  Transmission Date: 20120825
  Serious: No
  Sender: FDA-Public Use
  Company Number: None

PATIENT
  Age: 58 Year
  Sex: Male
  Weight: 87.5442 kg

DRUGS (2)
  1. MIRALAX [Suspect]
     Indication: COLONOSCOPY
     Dosage: 8.3 OZ -238G- 8 OZ EVERY HR PO
     Route: 048
     Dates: start: 20120422, end: 20120422
  2. MIRALAX [Suspect]

REACTIONS (8)
  - DYSPHONIA [None]
  - SKIN DISCOLOURATION [None]
  - PHARYNGEAL OEDEMA [None]
  - SWELLING FACE [None]
  - ERYTHEMA [None]
  - INCREASED UPPER AIRWAY SECRETION [None]
  - LIP SWELLING [None]
  - SPEECH DISORDER [None]
